FAERS Safety Report 5775138-7 (Version None)
Quarter: 2008Q2

REPORT INFORMATION
  Report Type: 
  Country: None (occurrence: None)
  Receive Date: 20080616
  Receipt Date: 20080616
  Transmission Date: 20081010
  Serious: Yes (Hospitalization)
  Sender: FDA-Public Use
  Company Number: None

PATIENT
  Sex: Female
  Weight: 56.8 kg

DRUGS (1)
  1. CO-TRIMOXAZOLE DS [Suspect]
     Indication: SALMONELLOSIS
     Dosage: 1 TABLET BID PO
     Route: 048
     Dates: start: 20080410, end: 20080414

REACTIONS (5)
  - ABDOMINAL PAIN [None]
  - INFLAMMATION [None]
  - LYMPHADENITIS [None]
  - NECROSIS [None]
  - TRANSAMINASES INCREASED [None]
